FAERS Safety Report 6080348-8 (Version None)
Quarter: 2009Q1

REPORT INFORMATION
  Report Type: 
  Country: None (occurrence: None)
  Receive Date: 20090217
  Receipt Date: 20090205
  Transmission Date: 20090719
  Serious: Yes (Other)
  Sender: FDA-Public Use
  Company Number: US-AMGEN-US332288

PATIENT
  Sex: Male
  Weight: 160 kg

DRUGS (11)
  1. NPLATE [Suspect]
     Indication: IDIOPATHIC THROMBOCYTOPENIC PURPURA
     Dates: start: 20080909
  2. HYDROCODONE BITARTRATE [Concomitant]
  3. IRON [Concomitant]
     Route: 048
  4. OSCAL [Concomitant]
  5. AMBIEN [Concomitant]
  6. SPIRONOLACTONE [Concomitant]
  7. TYLENOL [Concomitant]
  8. VITAMIN B6 [Concomitant]
  9. POTASSIUM CHLORIDE [Concomitant]
  10. TIAZAC [Concomitant]
  11. FUROSEMIDE [Concomitant]

REACTIONS (8)
  - ARTHRALGIA [None]
  - ECCHYMOSIS [None]
  - MYALGIA [None]
  - OEDEMA PERIPHERAL [None]
  - PETECHIAE [None]
  - PLATELET COUNT DECREASED [None]
  - PLATELET COUNT INCREASED [None]
  - VENOUS INSUFFICIENCY [None]
